FAERS Safety Report 12284903 (Version 1)
Quarter: 2016Q2

REPORT INFORMATION
  Report Type: Spontaneous
  Country: CN (occurrence: CN)
  Receive Date: 20160420
  Receipt Date: 20160420
  Transmission Date: 20160815
  Serious: Yes (Hospitalization, Other)
  Sender: FDA-Public Use
  Company Number: CN-ACCORD-039733

PATIENT
  Age: 55 Year
  Sex: Male

DRUGS (3)
  1. CEFATHIAMIDINE [Concomitant]
     Active Substance: CEFTRIAXONE SODIUM
  2. NEDAPLATIN [Suspect]
     Active Substance: NEDAPLATIN
     Indication: CHEMOTHERAPY
  3. GEMCITABINE/GEMCITABINE HYDROCHLORIDE [Suspect]
     Active Substance: GEMCITABINE\GEMCITABINE HYDROCHLORIDE
     Indication: CHEMOTHERAPY

REACTIONS (1)
  - Nasal cavity cancer [Recovered/Resolved]
